FAERS Safety Report 7428475-4 (Version None)
Quarter: 2011Q2

REPORT INFORMATION
  Report Type: 
  Country: None (occurrence: None)
  Receive Date: 20110421
  Receipt Date: 20110418
  Transmission Date: 20111010
  Serious: Yes (Death)
  Sender: FDA-Public Use
  Company Number: JP-SANOFI-AVENTIS-2011SA011751

PATIENT
  Age: 81 Year
  Sex: Female
  Weight: 58.7 kg

DRUGS (47)
  1. PHYSIO 35 [Concomitant]
     Route: 042
     Dates: start: 20110120, end: 20110120
  2. ATARAX [Concomitant]
     Route: 042
     Dates: start: 20110120, end: 20110120
  3. MEYLON [Concomitant]
     Route: 042
     Dates: start: 20110124, end: 20110125
  4. CYLOCIDE [Concomitant]
     Route: 042
     Dates: start: 20110124, end: 20110124
  5. ELECTROLYTE SOLUTIONS [Concomitant]
     Route: 042
     Dates: start: 20110124, end: 20110125
  6. BLOOD TRANSFUSION, AUXILIARY PRODUCTS [Concomitant]
     Route: 042
     Dates: start: 20110124, end: 20110124
  7. MEYLON [Concomitant]
     Route: 042
     Dates: start: 20110121, end: 20110124
  8. GRANISETRON HCL [Concomitant]
     Route: 042
     Dates: start: 20110124, end: 20110124
  9. ACLACINON [Concomitant]
     Route: 042
     Dates: start: 20110125, end: 20110125
  10. BLOOD TRANSFUSION, AUXILIARY PRODUCTS [Concomitant]
     Route: 042
     Dates: start: 20110121, end: 20110121
  11. RASBURICASE [Suspect]
     Indication: HYPERURICAEMIA
     Route: 042
     Dates: start: 20110124, end: 20110125
  12. MIGLITOL [Concomitant]
     Dates: end: 20110118
  13. PHYSIO 35 [Concomitant]
     Route: 042
     Dates: start: 20110121, end: 20110124
  14. MEYLON [Concomitant]
     Route: 042
     Dates: start: 20110121, end: 20110124
  15. METILON [Concomitant]
     Route: 042
     Dates: start: 20110120, end: 20110120
  16. FUNGUARD [Concomitant]
     Route: 042
     Dates: start: 20110124, end: 20110125
  17. SERENACE [Concomitant]
     Route: 042
     Dates: start: 20110124, end: 20110125
  18. OMEPRAL [Concomitant]
     Route: 042
     Dates: start: 20110119, end: 20110125
  19. MEROPENEM [Concomitant]
     Route: 042
     Dates: start: 20110119, end: 20110119
  20. MEYLON [Concomitant]
     Route: 042
     Dates: start: 20110120, end: 20110123
  21. METILON [Concomitant]
     Route: 042
     Dates: start: 20110122, end: 20110122
  22. PREDONINE [Concomitant]
     Route: 042
     Dates: start: 20110124, end: 20110124
  23. GRANISETRON HCL [Concomitant]
     Route: 042
     Dates: start: 20110125, end: 20110125
  24. PLATELETS [Concomitant]
     Route: 042
     Dates: start: 20110119, end: 20110120
  25. PLATELETS [Concomitant]
     Route: 042
     Dates: start: 20110123, end: 20110124
  26. PHYSIO 35 [Concomitant]
     Route: 042
     Dates: start: 20110121, end: 20110124
  27. ATARAX [Concomitant]
     Route: 042
     Dates: start: 20110121, end: 20110121
  28. LASIX [Concomitant]
     Route: 042
     Dates: start: 20110124, end: 20110124
  29. GLYBURIDE [Concomitant]
     Dates: end: 20110119
  30. PHYSIO 35 [Concomitant]
     Route: 042
     Dates: start: 20110119, end: 20110119
  31. PHYSIO 35 [Concomitant]
     Route: 042
     Dates: start: 20110121, end: 20110124
  32. METILON [Concomitant]
     Route: 042
     Dates: start: 20110125, end: 20110125
  33. METILON [Concomitant]
     Route: 042
     Dates: start: 20110123, end: 20110123
  34. CRESTOR [Concomitant]
     Dates: end: 20110118
  35. MEYLON [Concomitant]
     Route: 042
     Dates: start: 20110121, end: 20110124
  36. METHOTREXATE [Concomitant]
     Route: 042
     Dates: start: 20110124, end: 20110124
  37. ACLACINON [Concomitant]
     Route: 042
     Dates: start: 20110124, end: 20110124
  38. PENTAZOCINE LACTATE [Concomitant]
     Route: 042
     Dates: start: 20110125, end: 20110125
  39. MAXIPIME [Concomitant]
     Route: 042
     Dates: start: 20110119, end: 20110119
  40. OMEPRAL [Concomitant]
     Route: 042
     Dates: start: 20110119, end: 20110125
  41. PHYSIO 35 [Concomitant]
     Route: 042
     Dates: start: 20110120, end: 20110120
  42. PHYSIO 35 [Concomitant]
     Route: 042
     Dates: start: 20110120, end: 20110120
  43. PHYSIO 35 [Concomitant]
     Route: 042
     Dates: start: 20110120, end: 20110123
  44. MEROPENEM [Concomitant]
     Route: 042
     Dates: start: 20110120, end: 20110125
  45. MEROPENEM [Concomitant]
     Route: 042
     Dates: start: 20110120, end: 20110125
  46. CYLOCIDE [Concomitant]
     Route: 042
     Dates: start: 20110124, end: 20110125
  47. REMINARON [Concomitant]
     Route: 042
     Dates: start: 20110124, end: 20110125

REACTIONS (1)
  - PULMONARY ALVEOLAR HAEMORRHAGE [None]
